FAERS Safety Report 21996618 (Version 1)
Quarter: 2023Q1

REPORT INFORMATION
  Report Type: Spontaneous
  Country: US (occurrence: US)
  Receive Date: 20230215
  Receipt Date: 20230215
  Transmission Date: 20230418
  Serious: Yes (Other)
  Sender: FDA-Public Use
  Company Number: US-ALLERGAN-2222669US

PATIENT
  Sex: Female

DRUGS (1)
  1. VIIBRYD [Suspect]
     Active Substance: VILAZODONE HYDROCHLORIDE
     Indication: Major depression
     Dosage: UNK

REACTIONS (6)
  - Suicidal ideation [Unknown]
  - Product use issue [Unknown]
  - Depression [Unknown]
  - Impulsive behaviour [Unknown]
  - Agitation [Unknown]
  - Logorrhoea [Unknown]
